FAERS Safety Report 5042323-1 (Version None)
Quarter: 2006Q2

REPORT INFORMATION
  Report Type: 
  Country: None (occurrence: None)
  Receive Date: 20060601
  Receipt Date: 20060331
  Transmission Date: 20061013
  Serious: No
  Sender: FDA-Public Use
  Company Number: 2006PV011262

PATIENT
  Age: 48 Year
  Sex: Male
  Weight: 104.3273 kg

DRUGS (3)
  1. BYETTA [Suspect]
     Indication: DIABETES MELLITUS NON-INSULIN-DEPENDENT
     Dosage: SEE IMAGE, SC
     Route: 058
     Dates: start: 20060222, end: 20060321
  2. BYETTA [Suspect]
     Indication: DIABETES MELLITUS NON-INSULIN-DEPENDENT
     Dosage: SEE IMAGE, SC
     Route: 058
     Dates: start: 20060322
  3. AMARYL [Concomitant]

REACTIONS (6)
  - BLOOD GLUCOSE INCREASED [None]
  - CONSTIPATION [None]
  - DRUG EFFECT DECREASED [None]
  - DYSPEPSIA [None]
  - STOMACH DISCOMFORT [None]
  - WEIGHT DECREASED [None]
